FAERS Safety Report 6297603-9 (Version None)
Quarter: 2009Q3

REPORT INFORMATION
  Report Type: 
  Country: None (occurrence: None)
  Receive Date: 20090805
  Receipt Date: 20090730
  Transmission Date: 20100115
  Serious: Yes (Other)
  Sender: FDA-Public Use
  Company Number: PHHO2008FR09279

PATIENT
  Sex: Male
  Weight: 81 kg

DRUGS (8)
  1. RAD 666 RAD+TAB+CMAS [Suspect]
     Indication: CHEMOTHERAPY MULTIPLE AGENTS SYSTEMIC
     Dosage: UNK
     Route: 048
     Dates: start: 20071009, end: 20080724
  2. PLACEBO COMP-PLA+ [Suspect]
     Indication: RENAL CANCER METASTATIC
     Dosage: UNK
     Route: 048
     Dates: start: 20070807
  3. OXYCONTIN [Concomitant]
  4. EUPRESSYL [Concomitant]
  5. XATRAL [Concomitant]
  6. EUPANTOL [Concomitant]
  7. PANOS [Concomitant]
  8. LERCAN [Concomitant]

REACTIONS (4)
  - ANGIOPATHY [None]
  - KARNOFSKY SCALE WORSENED [None]
  - LIVER DISORDER [None]
  - METASTASES TO LIVER [None]
